FAERS Safety Report 23707660 (Version 1)
Quarter: 2024Q2

REPORT INFORMATION
  Report Type: Spontaneous
  Country: TW (occurrence: TW)
  Receive Date: 20240404
  Receipt Date: 20240404
  Transmission Date: 20240716
  Serious: Yes (Death, Other)
  Sender: FDA-Public Use
  Company Number: TW-DSJP-DSJ-2024-114860AA

PATIENT
  Age: 79 Year
  Sex: Female

DRUGS (1)
  1. TRASTUZUMAB DERUXTECAN [Suspect]
     Active Substance: TRASTUZUMAB DERUXTECAN
     Indication: Breast cancer
     Dosage: 100 MG, (1 VIAL) ONCE EVERY 3 WK
     Route: 042
     Dates: start: 20240104

REACTIONS (2)
  - Sepsis [Fatal]
  - Fall [Unknown]

NARRATIVE: CASE EVENT DATE: 20240315
